FAERS Safety Report 25048440 (Version 1)
Quarter: 2025Q1

REPORT INFORMATION
  Report Type: Spontaneous
  Country: JP (occurrence: JP)
  Receive Date: 20250307
  Receipt Date: 20250307
  Transmission Date: 20250409
  Serious: Yes (Hospitalization, Other)
  Sender: MERCK SHARP & DOHME LLC
  Company Number: JP-009507513-2261665

PATIENT
  Age: 8 Decade
  Sex: Female

DRUGS (3)
  1. KEYTRUDA [Suspect]
     Active Substance: PEMBROLIZUMAB
     Indication: Lung adenocarcinoma stage III
     Dosage: 200MG ONE EVERY 3 WEEKS
     Route: 041
     Dates: start: 20241210
  2. PEMETREXED [Concomitant]
     Active Substance: PEMETREXED
     Indication: Lung adenocarcinoma stage III
     Dates: start: 20241210
  3. CISPLATIN [Concomitant]
     Active Substance: CISPLATIN
     Indication: Lung adenocarcinoma stage III
     Dates: start: 20241210

REACTIONS (3)
  - Pulmonary artery thrombosis [Recovering/Resolving]
  - Deep vein thrombosis [Unknown]
  - Thrombosed varicose vein [Unknown]

NARRATIVE: CASE EVENT DATE: 20250212
